FAERS Safety Report 4808683-9 (Version None)
Quarter: 2005Q4

REPORT INFORMATION
  Report Type: 
  Country: None (occurrence: None)
  Receive Date: 20051021
  Receipt Date: 20020829
  Transmission Date: 20060501
  Serious: No
  Sender: FDA-Public Use
  Company Number: US_020987816

PATIENT
  Age: 78 Year
  Sex: Female
  Weight: 60 kg

DRUGS (4)
  1. OLANZAPINE [Suspect]
     Indication: ANXIETY
     Dosage: 2.5 MG
     Route: 048
     Dates: start: 20020506, end: 20020701
  2. OLANZAPINE [Suspect]
     Indication: DEPRESSION
     Dosage: 2.5 MG
     Route: 048
     Dates: start: 20020506, end: 20020701
  3. VENLAFAXINE [Concomitant]
  4. CLONAZEPAM [Concomitant]

REACTIONS (1)
  - WHITE BLOOD CELL COUNT DECREASED [None]
